FAERS Safety Report 7406371-6 (Version None)
Quarter: 2011Q2

REPORT INFORMATION
  Report Type: 
  Country: None (occurrence: None)
  Receive Date: 20110406
  Receipt Date: 20110406
  Transmission Date: 20111010
  Serious: Yes (Hospitalization)
  Sender: FDA-Public Use
  Company Number: None

PATIENT
  Age: 80 Year
  Sex: Male

DRUGS (1)
  1. ENOXAPARIN [Suspect]
     Indication: ATRIAL FIBRILLATION
     Dosage: 100 MG BI D SQ
     Route: 058
     Dates: start: 20110329, end: 20110403

REACTIONS (5)
  - HAEMATOMA [None]
  - HAEMORRHAGE [None]
  - DIZZINESS [None]
  - GROIN PAIN [None]
  - ATRIAL FLUTTER [None]
